FAERS Safety Report 6367455-7 (Version None)
Quarter: 2009Q3

REPORT INFORMATION
  Report Type: 
  Country: None (occurrence: None)
  Receive Date: 20090921
  Receipt Date: 20090911
  Transmission Date: 20100115
  Serious: Yes (Hospitalization)
  Sender: FDA-Public Use
  Company Number: B0592846A

PATIENT
  Sex: Male

DRUGS (8)
  1. CLAVENTIN [Suspect]
     Indication: LUNG INFECTION
     Dosage: 5G THREE TIMES PER DAY
     Route: 042
     Dates: start: 20090403, end: 20090413
  2. VANCOMYCIN [Suspect]
     Indication: LUNG INFECTION
     Dosage: 2G PER DAY
     Route: 042
     Dates: start: 20090403, end: 20090413
  3. LOVENOX [Concomitant]
     Indication: DRUG USE FOR UNKNOWN INDICATION
     Dosage: .4ML PER DAY
     Route: 058
     Dates: start: 20090311
  4. FORLAX [Concomitant]
     Indication: DRUG USE FOR UNKNOWN INDICATION
     Dosage: 1UNIT THREE TIMES PER DAY
     Route: 048
     Dates: start: 20090329
  5. SCOPOLAMINE [Concomitant]
     Indication: DRUG USE FOR UNKNOWN INDICATION
     Dosage: 1MG TWO TIMES PER WEEK
     Route: 065
     Dates: start: 20090322
  6. DURAGESIC-100 [Concomitant]
     Indication: DRUG USE FOR UNKNOWN INDICATION
     Dosage: 50MCG TWO TIMES PER WEEK
     Route: 065
     Dates: start: 20090301
  7. TIENAM [Concomitant]
     Indication: LUNG INFECTION
     Route: 065
     Dates: start: 20090301, end: 20090301
  8. FORTUM [Concomitant]
     Indication: LUNG INFECTION
     Route: 065
     Dates: start: 20090301, end: 20090101

REACTIONS (8)
  - AGRANULOCYTOSIS [None]
  - CHILLS [None]
  - CYANOSIS [None]
  - NEUTROPHIL COUNT DECREASED [None]
  - PYREXIA [None]
  - RASH [None]
  - RASH MORBILLIFORM [None]
  - WHITE BLOOD CELL COUNT DECREASED [None]
